FAERS Safety Report 16965291 (Version 1)
Quarter: 2019Q4

REPORT INFORMATION
  Report Type: Spontaneous
  Country: CN (occurrence: CN)
  Receive Date: 20191028
  Receipt Date: 20191028
  Transmission Date: 20200122
  Serious: Yes (Other)
  Sender: FDA-Public Use
  Company Number: CN-BAXTER-2019BAX021373

PATIENT
  Age: 74 Year
  Sex: Female
  Weight: 38.8 kg

DRUGS (10)
  1. 0.9% SODIUM CHLORIDE INJECTION [Suspect]
     Active Substance: SODIUM CHLORIDE
     Dosage: NS 100 ML + TROPISETRON HYDROCHLORIDE 5 MG
     Route: 041
     Dates: start: 20191016, end: 20191016
  2. GAINUO [Suspect]
     Active Substance: VINORELBINE TARTRATE
     Indication: DIFFUSE LARGE B-CELL LYMPHOMA
     Dosage: GAINUO 30 MG + NS 100ML
     Route: 041
     Dates: start: 20191016, end: 20191016
  3. ENDOXAN [Suspect]
     Active Substance: CYCLOPHOSPHAMIDE
     Indication: DIFFUSE LARGE B-CELL LYMPHOMA
     Dosage: ENDOXAN 0.6 G + NS 100 ML
     Route: 041
     Dates: start: 20191016, end: 20191016
  4. 0.9% SODIUM CHLORIDE INJECTION [Suspect]
     Active Substance: SODIUM CHLORIDE
     Indication: MEDICATION DILUTION
     Dosage: VINORELBINE TARTRATE INJECTION 30 MG + NS 100ML IVGTT D1
     Route: 041
     Dates: start: 20191016, end: 20191016
  5. DEXAMETHASONE SODIUM PHOSPHATE. [Suspect]
     Active Substance: DEXAMETHASONE SODIUM PHOSPHATE
     Indication: DIFFUSE LARGE B-CELL LYMPHOMA
     Dosage: DEXAMETHASONE SODIUM PHOSPHATE 10 MG + 5% GS 250ML
     Route: 041
     Dates: start: 20191016, end: 20191019
  6. SODIUM CHLORIDE. [Suspect]
     Active Substance: SODIUM CHLORIDE
     Indication: MEDICATION DILUTION
     Dosage: ENDOXAN 0.6 G + NS 100 ML
     Route: 041
     Dates: start: 20191016, end: 20191016
  7. 0.9% SODIUM CHLORIDE INJECTION [Suspect]
     Active Substance: SODIUM CHLORIDE
     Dosage: NS 100 ML + ESOMEPRAZOLE SODIUM 40 MG
     Route: 041
     Dates: start: 20191016, end: 20191021
  8. 5% GLUCOSE  INJECTION [Suspect]
     Active Substance: DEXTROSE
     Indication: MEDICATION DILUTION
     Dosage: 5 % GS 250 ML + DEXAMETHASONE SODIUM PHOSPHATE 10 MG
     Route: 041
     Dates: start: 20191016, end: 20191019
  9. TROPISETRON HYDROCHLORIDE [Suspect]
     Active Substance: TROPISETRON HYDROCHLORIDE
     Indication: PROPHYLAXIS OF NAUSEA AND VOMITING
     Dosage: TROPISETRON HYDROCHLORIDE INJECTION 5 MG + NORMAL SALINE 100ML
     Route: 041
     Dates: start: 20191016, end: 20191016
  10. ESOMEPRAZOLE SODIUM. [Suspect]
     Active Substance: ESOMEPRAZOLE SODIUM
     Indication: PROPHYLAXIS
     Dosage: ESOMEPRAZOLE SODIUM 40 MG + NS 100 ML
     Route: 041
     Dates: start: 20191016, end: 20191021

REACTIONS (6)
  - Thrombocytopenia [Recovering/Resolving]
  - Haemoglobin decreased [Recovering/Resolving]
  - Leukopenia [Recovering/Resolving]
  - Bone marrow failure [Unknown]
  - Red blood cell count decreased [Recovering/Resolving]
  - Neutropenia [Recovering/Resolving]

NARRATIVE: CASE EVENT DATE: 20191018
